FAERS Safety Report 15994577 (Version 3)
Quarter: 2019Q2

REPORT INFORMATION
  Report Type: Report from Study
  Country: PL (occurrence: PL)
  Receive Date: 20190222
  Receipt Date: 20190626
  Transmission Date: 20190711
  Serious: Yes (Hospitalization, Other)
  Sender: FDA-Public Use
  Company Number: PL-TEVA-2019-PL-1015020

PATIENT
  Sex: Male

DRUGS (10)
  1. DANAZOL. [Suspect]
     Active Substance: DANAZOL
     Route: 065
  2. ELTROMBOPAG [Suspect]
     Active Substance: ELTROMBOPAG
     Dosage: A STARTING DOSE
     Route: 065
  3. ELTROMBOPAG [Suspect]
     Active Substance: ELTROMBOPAG
     Dosage: 3 WEEKS
     Route: 065
  4. AZATHIOPRINE. [Suspect]
     Active Substance: AZATHIOPRINE
     Route: 065
  5. MYCOPHENOLATE MOFETIL. [Suspect]
     Active Substance: MYCOPHENOLATE MOFETIL
     Route: 065
  6. DEXAMETASONE [Suspect]
     Active Substance: DEXAMETHASONE
     Route: 065
  7. SOLU-MEDROL [Suspect]
     Active Substance: METHYLPREDNISOLONE SODIUM SUCCINATE
     Route: 065
  8. CICLOSPORIN [Suspect]
     Active Substance: CYCLOSPORINE
     Route: 065
  9. PREDNISONE (ENCORTON) [Suspect]
     Active Substance: PREDNISONE
     Dosage: PREDNISONE (ENCORTON)
     Route: 065
  10. IMMUNOGLOBULIN (IGGIV) [Suspect]
     Active Substance: HUMAN IMMUNOGLOBULIN G
     Dosage: IMMUNOGLOBULIN (IGGIV)
     Route: 065

REACTIONS (8)
  - Dermatitis allergic [Unknown]
  - Platelet count abnormal [Unknown]
  - Seizure [Unknown]
  - Loss of consciousness [Unknown]
  - Drug ineffective [Unknown]
  - Thrombocytopenia [Unknown]
  - Therapeutic product effect incomplete [Unknown]
  - Cushingoid [Unknown]

NARRATIVE: CASE EVENT DATE: 201206
